FAERS Safety Report 19015510 (Version 1)
Quarter: 2021Q1

REPORT INFORMATION
  Report Type: Spontaneous
  Country: US (occurrence: US)
  Receive Date: 20210317
  Receipt Date: 20210317
  Transmission Date: 20210420
  Serious: Yes (Hospitalization)
  Sender: FDA-Public Use
  Company Number: US-SPECGX-T202100429

PATIENT
  Age: 41 Year
  Sex: Female

DRUGS (4)
  1. METHADONE [Suspect]
     Active Substance: METHADONE HYDROCHLORIDE
     Indication: NEURALGIA
     Dosage: 5 MILLIGRAM, BID
     Route: 065
  2. HYDROMORPHONE [Suspect]
     Active Substance: HYDROMORPHONE
     Indication: PAIN
     Dosage: 0.3 MILLIGRAM, Q 10 MIN
     Route: 042
  3. FENTANYL. [Suspect]
     Active Substance: FENTANYL
     Indication: PAIN
     Dosage: 25 MCG, Q 10 MIN
     Route: 042
  4. MORPHINE [Suspect]
     Active Substance: MORPHINE
     Indication: PAIN
     Dosage: 15 MILLIGRAM, BID
     Route: 065

REACTIONS (6)
  - Delirium [Recovering/Resolving]
  - Hypercalcaemia [Unknown]
  - Condition aggravated [Unknown]
  - Anaemia [Unknown]
  - Constipation [Unknown]
  - Metastatic neoplasm [Unknown]
